FAERS Safety Report 11801434 (Version 1)
Quarter: 2015Q4

REPORT INFORMATION
  Report Type: Spontaneous
  Country: US (occurrence: None)
  Receive Date: 20151203
  Receipt Date: 20151203
  Transmission Date: 20160305
  Serious: Yes (Other)
  Sender: FDA-Public Use
  Company Number: None

PATIENT
  Age: 17 Year
  Sex: Male
  Weight: 47.63 kg

DRUGS (1)
  1. BACLOFEN 20MG/ML [Suspect]
     Active Substance: BACLOFEN
     Indication: MUSCLE SPASTICITY
     Dates: start: 20151101, end: 20151201

REACTIONS (13)
  - Aggression [None]
  - Mydriasis [None]
  - Product substitution issue [None]
  - Eye pruritus [None]
  - Liquid product physical issue [None]
  - Hypersomnia [None]
  - Abnormal behaviour [None]
  - Pollakiuria [None]
  - Somnolence [None]
  - Vomiting [None]
  - Crying [None]
  - Speech disorder [None]
  - Eyelid oedema [None]

NARRATIVE: CASE EVENT DATE: 20151101
